FAERS Safety Report 10192817 (Version 1)
Quarter: 2014Q2

REPORT INFORMATION
  Report Type: Spontaneous
  Country: US (occurrence: US)
  Receive Date: 20140523
  Receipt Date: 20140523
  Transmission Date: 20141212
  Serious: No
  Sender: FDA-Public Use
  Company Number: US-ASTRAZENECA-2014SE15297

PATIENT
  Age: 77 Year
  Sex: Female
  Weight: 90.7 kg

DRUGS (1)
  1. PULMICORT FLEXHALER [Suspect]
     Dosage: 180 MCG, 2 PUFFS BID
     Route: 055

REACTIONS (3)
  - Macular degeneration [Unknown]
  - Circumstance or information capable of leading to medication error [Unknown]
  - Circumstance or information capable of leading to device use error [Unknown]
